FAERS Safety Report 15738593 (Version 1)
Quarter: 2018Q4

REPORT INFORMATION
  Report Type: Spontaneous
  Country: US (occurrence: US)
  Receive Date: 20181219
  Receipt Date: 20181219
  Transmission Date: 20190205
  Serious: No
  Sender: FDA-Public Use
  Company Number: US-PFIZER INC-2018513193

PATIENT
  Age: 70 Year
  Sex: Female

DRUGS (10)
  1. TETANUS TOXOID [Suspect]
     Active Substance: TETANUS TOXOIDS
     Dosage: UNK
  2. PYRIDIUM [Suspect]
     Active Substance: PHENAZOPYRIDINE
     Dosage: UNK
  3. TRIAMCINOLONE [Suspect]
     Active Substance: TRIAMCINOLONE
     Dosage: UNK
  4. MS [Suspect]
     Active Substance: MORPHINE SULFATE
     Dosage: UNK
  5. CEFTRIAXONE SODIUM. [Suspect]
     Active Substance: CEFTRIAXONE SODIUM
     Dosage: UNK
  6. CIPROFLOXACIN. [Suspect]
     Active Substance: CIPROFLOXACIN
     Dosage: UNK
  7. BACTRIM [Suspect]
     Active Substance: SULFAMETHOXAZOLE\TRIMETHOPRIM
     Dosage: UNK
  8. PERCOCET [OXYCODONE HYDROCHLORIDE;OXYCODONE TEREPHTHALATE;PARACETAMOL] [Suspect]
     Active Substance: ACETAMINOPHEN\OXYCODONE HYDROCHLORIDE\OXYCODONE TEREPHTHALATE
     Dosage: UNK
  9. ALBUTEROL [SALBUTAMOL SULFATE] [Suspect]
     Active Substance: ALBUTEROL SULFATE
     Dosage: UNK
  10. IODINE. [Suspect]
     Active Substance: IODINE
     Dosage: UNK

REACTIONS (1)
  - Drug hypersensitivity [Unknown]
